FAERS Safety Report 20956441 (Version 1)
Quarter: 2022Q2

REPORT INFORMATION
  Report Type: Report from Study
  Country: NL (occurrence: NL)
  Receive Date: 20220614
  Receipt Date: 20220614
  Transmission Date: 20220720
  Serious: Yes (Death)
  Sender: FDA-Public Use
  Company Number: NL-VER-202200057

PATIENT
  Age: 90 Year
  Sex: Male

DRUGS (1)
  1. TRIPTORELIN PAMOATE [Suspect]
     Active Substance: TRIPTORELIN PAMOATE
     Indication: Prostate cancer
     Dosage: SOLV 2ML
     Route: 030
     Dates: start: 20210130

REACTIONS (1)
  - Death [Fatal]

NARRATIVE: CASE EVENT DATE: 20220512
